FAERS Safety Report 5192178-X (Version None)
Quarter: 2006Q4

REPORT INFORMATION
  Report Type: 
  Country: None (occurrence: None)
  Receive Date: 20061220
  Receipt Date: 20061205
  Transmission Date: 20070319
  Serious: Yes (Death)
  Sender: FDA-Public Use
  Company Number: 2006S1011288

PATIENT
  Age: 43 Year
  Sex: Female
  Weight: 134.7183 kg

DRUGS (7)
  1. FENTANYL TRANSDERMAL SYSTEM [Suspect]
     Indication: BACK PAIN
     Dosage: 75 UG/HR; Q3D; TDER
     Route: 062
     Dates: end: 20051110
  2. CLONAPAM (CON.) [Concomitant]
  3. CARISOPRODOL (CON.) [Concomitant]
  4. LEVOTHYROXINE SODIUM (CON.) [Concomitant]
  5. ESCITALOPRAM OXALATE (CON.) [Concomitant]
  6. BUPROPION (CON.) [Concomitant]
  7. FEXOFENADINE (CON.) [Concomitant]

REACTIONS (22)
  - ACCIDENTAL DEATH [None]
  - ADRENAL ADENOMA [None]
  - ANXIETY [None]
  - CARDIAC ARREST [None]
  - CARDIOMEGALY [None]
  - CONTRAINDICATION TO MEDICAL TREATMENT [None]
  - DISCOMFORT [None]
  - DRUG PRESCRIBING ERROR [None]
  - DRUG TOXICITY [None]
  - DYSPNOEA [None]
  - EMOTIONAL DISTRESS [None]
  - INCORRECT DRUG ADMINISTRATION RATE [None]
  - INJURY [None]
  - LOSS OF CONSCIOUSNESS [None]
  - MALAISE [None]
  - NAUSEA [None]
  - PANIC ATTACK [None]
  - PHARMACEUTICAL PRODUCT COMPLAINT [None]
  - RESPIRATORY ARREST [None]
  - STRESS [None]
  - VENTRICULAR HYPERTROPHY [None]
  - VOMITING [None]
